FAERS Safety Report 9411155 (Version 4)
Quarter: 2013Q4

REPORT INFORMATION
  Report Type: Report from Study
  Country: US (occurrence: US)
  Receive Date: 20130721
  Receipt Date: 20131008
  Transmission Date: 20140711
  Serious: Yes (Other)
  Sender: FDA-Public Use
  Company Number: PHEH2013US011999

PATIENT
  Age: 72 Year
  Sex: Female
  Weight: 61.68 kg

DRUGS (16)
  1. GILENYA [Suspect]
     Indication: MULTIPLE SCLEROSIS
     Dosage: 0.5 MG, QD
     Route: 048
     Dates: start: 20130429, end: 201307
  2. LISINOPRIL [Concomitant]
  3. HYDROCHLOROTHIAZIDE [Concomitant]
  4. CRESTOR [Concomitant]
  5. EFFEXOR [Concomitant]
  6. ESTRADIOL [Concomitant]
  7. MIRAPEX [Concomitant]
  8. OXYBUTYNIN [Concomitant]
  9. VITAMIN D3 [Concomitant]
  10. AMOXICILLIN [Concomitant]
  11. RECLAST [Concomitant]
  12. MELOXICAM [Concomitant]
  13. VITAMIN B12 [Concomitant]
  14. ZINC [Concomitant]
  15. FISH OIL [Concomitant]
  16. FOLIC [Concomitant]

REACTIONS (11)
  - Fall [Unknown]
  - Multiple sclerosis relapse [Not Recovered/Not Resolved]
  - Posture abnormal [Unknown]
  - Feeling abnormal [Unknown]
  - Fatigue [Unknown]
  - Gait disturbance [Unknown]
  - Somnolence [Unknown]
  - Back pain [Not Recovered/Not Resolved]
  - Alopecia [Not Recovered/Not Resolved]
  - Dizziness [Unknown]
  - Drug ineffective [Unknown]
